FAERS Safety Report 9331711 (Version 1)
Quarter: 2013Q2

REPORT INFORMATION
  Report Type: Spontaneous
  Country: US (occurrence: None)
  Receive Date: 20130603
  Receipt Date: 20130603
  Transmission Date: 20140414
  Serious: Yes (Other)
  Sender: FDA-Public Use
  Company Number: 2013-03304

PATIENT
  Age: 29 Year
  Sex: Female

DRUGS (1)
  1. THERACYS [Suspect]
     Dosage: PERCUTANEOUS

REACTIONS (7)
  - Accidental exposure to product [None]
  - Tenosynovitis [None]
  - Mycobacterial infection [None]
  - Purulence [None]
  - Injection site erythema [None]
  - Injection site pain [None]
  - Injection site swelling [None]
